FAERS Safety Report 6620765-8 (Version None)
Quarter: 2010Q1

REPORT INFORMATION
  Report Type: 
  Country: None (occurrence: None)
  Receive Date: 20100309
  Receipt Date: 20100301
  Transmission Date: 20100710
  Serious: Yes (Other)
  Sender: FDA-Public Use
  Company Number: US-PFIZER INC-2009308599

PATIENT
  Sex: Male
  Weight: 104.3 kg

DRUGS (5)
  1. LIPITOR [Suspect]
     Indication: CORONARY ARTERY DISEASE
     Dosage: 40 MG, 1X/DAY
     Route: 048
     Dates: start: 20060629, end: 20070803
  2. LIPITOR [Suspect]
     Indication: HYPERLIPIDAEMIA
  3. ATENOLOL [Concomitant]
  4. ACETYLSALICYLIC ACID [Concomitant]
  5. PLAVIX [Concomitant]

REACTIONS (4)
  - DIABETES MELLITUS [None]
  - GAIT DISTURBANCE [None]
  - NEUROMYOPATHY [None]
  - POLYNEUROPATHY [None]
